FAERS Safety Report 24790312 (Version 2)
Quarter: 2025Q1

REPORT INFORMATION
  Report Type: Spontaneous
  Country: CA (occurrence: CA)
  Receive Date: 20241230
  Receipt Date: 20250206
  Transmission Date: 20250409
  Serious: Yes (Other)
  Sender: CATALYST PHARMA
  Company Number: CA-CATALYSTPHARMACEUTICALPARTNERS-CA-CATA-24-01611

PATIENT
  Age: 20 Year
  Sex: Male

DRUGS (27)
  1. PERAMPANEL [Suspect]
     Active Substance: PERAMPANEL
     Indication: Lennox-Gastaut syndrome
     Route: 048
  2. PERAMPANEL [Suspect]
     Active Substance: PERAMPANEL
     Indication: Tonic convulsion
  3. PERAMPANEL [Suspect]
     Active Substance: PERAMPANEL
     Indication: Early infantile epileptic encephalopathy with burst-suppression
  4. CARBAMAZEPINE [Suspect]
     Active Substance: CARBAMAZEPINE
     Indication: Lennox-Gastaut syndrome
     Route: 065
  5. CARBAMAZEPINE [Suspect]
     Active Substance: CARBAMAZEPINE
     Indication: Tonic convulsion
  6. CARBAMAZEPINE [Suspect]
     Active Substance: CARBAMAZEPINE
     Indication: Early infantile epileptic encephalopathy with burst-suppression
  7. CLOBAZAM [Suspect]
     Active Substance: CLOBAZAM
     Indication: Lennox-Gastaut syndrome
     Route: 065
  8. CLOBAZAM [Suspect]
     Active Substance: CLOBAZAM
     Indication: Early infantile epileptic encephalopathy with burst-suppression
  9. CLOBAZAM [Suspect]
     Active Substance: CLOBAZAM
     Indication: Tonic convulsion
  10. CLONAZEPAM [Suspect]
     Active Substance: CLONAZEPAM
     Indication: Lennox-Gastaut syndrome
     Route: 065
  11. CLONAZEPAM [Suspect]
     Active Substance: CLONAZEPAM
     Indication: Early infantile epileptic encephalopathy with burst-suppression
  12. CLONAZEPAM [Suspect]
     Active Substance: CLONAZEPAM
     Indication: Tonic convulsion
  13. LAMOTRIGINE [Suspect]
     Active Substance: LAMOTRIGINE
     Indication: Lennox-Gastaut syndrome
     Route: 065
  14. LAMOTRIGINE [Suspect]
     Active Substance: LAMOTRIGINE
     Indication: Early infantile epileptic encephalopathy with burst-suppression
  15. LAMOTRIGINE [Suspect]
     Active Substance: LAMOTRIGINE
     Indication: Tonic convulsion
  16. LEVETIRACETAM [Suspect]
     Active Substance: LEVETIRACETAM
     Indication: Lennox-Gastaut syndrome
     Route: 065
  17. LEVETIRACETAM [Suspect]
     Active Substance: LEVETIRACETAM
     Indication: Early infantile epileptic encephalopathy with burst-suppression
  18. LEVETIRACETAM [Suspect]
     Active Substance: LEVETIRACETAM
     Indication: Tonic convulsion
  19. MEMANTINE [Suspect]
     Active Substance: MEMANTINE
     Indication: Lennox-Gastaut syndrome
     Route: 065
  20. MEMANTINE [Suspect]
     Active Substance: MEMANTINE
     Indication: Early infantile epileptic encephalopathy with burst-suppression
  21. MEMANTINE [Suspect]
     Active Substance: MEMANTINE
     Indication: Tonic convulsion
  22. TOPIRAMATE [Suspect]
     Active Substance: TOPIRAMATE
     Indication: Lennox-Gastaut syndrome
     Route: 065
  23. TOPIRAMATE [Suspect]
     Active Substance: TOPIRAMATE
     Indication: Early infantile epileptic encephalopathy with burst-suppression
  24. TOPIRAMATE [Suspect]
     Active Substance: TOPIRAMATE
     Indication: Tonic convulsion
  25. VALPROIC ACID [Suspect]
     Active Substance: VALPROIC ACID
     Indication: Lennox-Gastaut syndrome
     Route: 065
  26. VALPROIC ACID [Suspect]
     Active Substance: VALPROIC ACID
     Indication: Early infantile epileptic encephalopathy with burst-suppression
  27. VALPROIC ACID [Suspect]
     Active Substance: VALPROIC ACID
     Indication: Tonic convulsion

REACTIONS (2)
  - Drug ineffective [Unknown]
  - Off label use [Unknown]
